FAERS Safety Report 4528966-X (Version None)
Quarter: 2004Q4

REPORT INFORMATION
  Report Type: 
  Country: None (occurrence: None)
  Receive Date: 20041214
  Receipt Date: 20041208
  Transmission Date: 20050328
  Serious: Yes (Other)
  Sender: FDA-Public Use
  Company Number: 003548

PATIENT
  Age: 59 Year
  Sex: Female
  Weight: 103 kg

DRUGS (11)
  1. ZIAC [Suspect]
     Indication: HYPERTENSION
     Dosage: 1.00 UNK, QD,
     Route: 065
  2. ENBREL [Suspect]
     Indication: ANKYLOSING SPONDYLITIS
     Dosage: 25.00 MG, 2/WEEK, SUBCUTANEOUS
     Route: 058
     Dates: start: 20020401
  3. DICLOFENAC SODIUM [Suspect]
     Indication: RHEUMATOID ARTHRITIS
     Dosage: 50.00 MG, QD; ORAL
     Route: 048
  4. PREDNISOLONE [Suspect]
     Indication: RHEUMATOID ARTHRITIS
     Dosage: 5.00 MG, QD; ORAL
     Route: 048
  5. FELODIPINE [Suspect]
     Indication: HYPERTENSION
     Dosage: 5.00 MG, BID; ORAL
     Route: 048
  6. CALCIUM CARBONATE (CALCIUM CARBONATE) [Suspect]
     Dosage: UNK, QD,
  7. OMEPRAZOLE [Suspect]
     Dosage: 20.00 MG, QD;
     Route: 065
  8. TORSEMIDE [Suspect]
     Indication: HYPERTENSION
     Dosage: 20.00 MG, QD
     Route: 065
  9. ALENDRONATE SODIUM [Suspect]
     Indication: OSTEOPOROSIS
     Dosage: 70.00 MG, 1/WEEK,
     Route: 065
  10. BETAHISTINE MESILATE (BETAHISTINE MESILATE) [Suspect]
     Indication: TINNITUS
     Dosage: 12.00 MG, BID, UNK
     Route: 065
  11. METHOTREXATE [Suspect]

REACTIONS (5)
  - CONDITION AGGRAVATED [None]
  - DRUG INTERACTION [None]
  - GAMMA-GLUTAMYLTRANSFERASE INCREASED [None]
  - HEPATIC ENZYME INCREASED [None]
  - RHEUMATOID ARTHRITIS [None]
